FAERS Safety Report 7790713-6 (Version None)
Quarter: 2011Q3

REPORT INFORMATION
  Report Type: 
  Country: None (occurrence: None)
  Receive Date: 20110930
  Receipt Date: 20090318
  Transmission Date: 20111222
  Serious: Yes (Other)
  Sender: FDA-Public Use
  Company Number: PHHY2009TW60881

PATIENT
  Sex: Female

DRUGS (1)
  1. GLEEVEC [Suspect]
     Indication: CHRONIC MYELOID LEUKAEMIA
     Dosage: 400 MG, UNK
     Route: 048

REACTIONS (12)
  - MACULAR DEGENERATION [None]
  - MOOD ALTERED [None]
  - EYE HAEMORRHAGE [None]
  - RETINAL HAEMORRHAGE [None]
  - ANXIETY [None]
  - EFFUSION [None]
  - GLAUCOMA [None]
  - NASOPHARYNGITIS [None]
  - PYREXIA [None]
  - MUSCLE ATROPHY [None]
  - BLINDNESS [None]
  - CAPILLARY FRAGILITY [None]
